FAERS Safety Report 12748893 (Version 3)
Quarter: 2016Q4

REPORT INFORMATION
  Report Type: Report from Study
  Country: JP (occurrence: JP)
  Receive Date: 20160915
  Receipt Date: 20161209
  Transmission Date: 20170207
  Serious: Yes (Hospitalization)
  Sender: FDA-Public Use
  Company Number: PHJP2016JP026233

PATIENT
  Age: 45 Year
  Sex: Male
  Weight: 54.4 kg

DRUGS (22)
  1. CERTICAN [Suspect]
     Active Substance: EVEROLIMUS
     Indication: HEART TRANSPLANT
     Dosage: 1.5 MG, QD
     Route: 048
     Dates: start: 20150703, end: 20150716
  2. CERTICAN [Suspect]
     Active Substance: EVEROLIMUS
     Dosage: 2.75 MG, QD
     Route: 048
     Dates: start: 20151118, end: 20151125
  3. PROGRAF [Suspect]
     Active Substance: TACROLIMUS\TACROLIMUS ANHYDROUS
     Dosage: 2.0 MG, UNK
     Route: 048
     Dates: start: 20150717, end: 20150723
  4. CERTICAN [Suspect]
     Active Substance: EVEROLIMUS
     Dosage: 2.25 MG, QD
     Route: 048
     Dates: start: 20151126, end: 20151127
  5. CERTICAN [Suspect]
     Active Substance: EVEROLIMUS
     Dosage: 2.25 MG, QD
     Route: 048
     Dates: start: 20150904, end: 20151105
  6. CERTICAN [Suspect]
     Active Substance: EVEROLIMUS
     Dosage: 2.5 MG, QD
     Route: 048
     Dates: start: 20151128
  7. PROGRAF [Suspect]
     Active Substance: TACROLIMUS\TACROLIMUS ANHYDROUS
     Dosage: 2.0 MG, UNK
     Route: 048
     Dates: start: 20151126, end: 20151204
  8. CRESTOR [Concomitant]
     Active Substance: ROSUVASTATIN CALCIUM
     Indication: PROPHYLAXIS
     Dosage: 2.5 MG, UNK
     Route: 048
     Dates: start: 20150415
  9. PROGRAF [Suspect]
     Active Substance: TACROLIMUS\TACROLIMUS ANHYDROUS
     Dosage: 1.7 MG, UNK
     Route: 048
     Dates: start: 20150724, end: 20151125
  10. PROGRAF [Suspect]
     Active Substance: TACROLIMUS\TACROLIMUS ANHYDROUS
     Dosage: 2.2 MG, UNK
     Route: 048
     Dates: start: 20151205, end: 20151224
  11. PREDONINE [Concomitant]
     Active Substance: PREDNISOLONE\PREDNISOLONE ACETATE\PREDNISOLONE SODIUM SUCCINATE
     Dosage: 10 MG, UNK
     Route: 048
     Dates: start: 20150807
  12. PROGRAF [Suspect]
     Active Substance: TACROLIMUS\TACROLIMUS ANHYDROUS
     Indication: HEART TRANSPLANT
     Dosage: 3.2 MG, UNK
     Route: 048
     Dates: start: 20150605, end: 20150706
  13. PROGRAF [Suspect]
     Active Substance: TACROLIMUS\TACROLIMUS ANHYDROUS
     Dosage: 3.4 MG, UNK
     Route: 048
     Dates: start: 20150707, end: 20150713
  14. PREDONINE [Concomitant]
     Active Substance: PREDNISOLONE\PREDNISOLONE ACETATE\PREDNISOLONE SODIUM SUCCINATE
     Indication: HEART TRANSPLANT
     Dosage: 12.5 MG, UNK
     Route: 048
     Dates: start: 20150612, end: 20150806
  15. CERTICAN [Suspect]
     Active Substance: EVEROLIMUS
     Dosage: 2.5 MG, QD
     Route: 048
     Dates: start: 20151106, end: 20151117
  16. PROGRAF [Suspect]
     Active Substance: TACROLIMUS\TACROLIMUS ANHYDROUS
     Dosage: 2.0 MG, UNK
     Route: 048
     Dates: start: 20151225
  17. ALFAROL [Concomitant]
     Active Substance: ALFACALCIDOL
     Indication: OSTEOPOROSIS
     Dosage: 0.5 UG, UNK
     Route: 048
  18. RENIVACE [Concomitant]
     Active Substance: ENALAPRIL
     Indication: PROPHYLAXIS
     Dosage: 5 MG, UNK
     Route: 048
  19. CERTICAN [Suspect]
     Active Substance: EVEROLIMUS
     Dosage: 2 MG, QD
     Route: 048
     Dates: start: 20150717, end: 20150903
  20. PROGRAF [Suspect]
     Active Substance: TACROLIMUS\TACROLIMUS ANHYDROUS
     Dosage: 2.4 MG, UNK
     Route: 048
     Dates: start: 20150714, end: 20150716
  21. THYRADIN-S [Concomitant]
     Active Substance: LEVOTHYROXINE
     Indication: HYPOTHYROIDISM
     Dosage: 50 UG, UNK
     Route: 048
     Dates: start: 20150220
  22. BAYASPIRIN [Concomitant]
     Active Substance: ASPIRIN
     Indication: PROPHYLAXIS
     Dosage: 100 MG, UNK
     Route: 048
     Dates: start: 20150305

REACTIONS (2)
  - Pyrexia [Unknown]
  - Pneumonia [Recovered/Resolved]

NARRATIVE: CASE EVENT DATE: 20151121
